FAERS Safety Report 19216485 (Version 1)
Quarter: 2021Q2

REPORT INFORMATION
  Report Type: Spontaneous
  Country: GB (occurrence: GB)
  Receive Date: 20210505
  Receipt Date: 20210505
  Transmission Date: 20210717
  Serious: Yes (Other)
  Sender: FDA-Public Use
  Company Number: GB-JNJFOC-20210457279

PATIENT
  Age: 89 Year
  Sex: Female
  Weight: 41.27 kg

DRUGS (13)
  1. ACCRETE D3 [Concomitant]
     Active Substance: CALCIUM CARBONATE\CHOLECALCIFEROL
  2. OMEGA?6 FATTY ACIDS [Concomitant]
     Active Substance: OMEGA-6 FATTY ACIDS
  3. VITAMIN C [Concomitant]
     Active Substance: ASCORBIC ACID
  4. EVENING PRIMROSE OIL [OENOTHERA BIENNIS] [Concomitant]
  5. IMODIUM [Suspect]
     Active Substance: LOPERAMIDE HYDROCHLORIDE
     Indication: DIARRHOEA
     Dosage: 1MG/5ML
     Route: 048
     Dates: start: 20210422, end: 20210423
  6. OMEPRAZOLE. [Concomitant]
     Active Substance: OMEPRAZOLE
  7. RENNIE [CALCIUM CARBONATE] [Concomitant]
     Active Substance: CALCIUM CARBONATE
  8. LOPERAMIDE HYDROCHLORIDE. [Concomitant]
     Active Substance: LOPERAMIDE HYDROCHLORIDE
  9. COENZYME Q10 [Concomitant]
     Active Substance: DIETARY SUPPLEMENT\UBIDECARENONE
  10. NINTEDANIB [Concomitant]
     Active Substance: NINTEDANIB
  11. OMEGA?3 FATTY ACIDS [Concomitant]
     Active Substance: OMEGA-3 FATTY ACIDS
  12. OMEGA 9 FATTY ACIDS [Concomitant]
  13. ADIZEM [Concomitant]
     Active Substance: DILTIAZEM HYDROCHLORIDE

REACTIONS (9)
  - Oral discomfort [Recovered/Resolved with Sequelae]
  - Dyspnoea [Recovered/Resolved with Sequelae]
  - Cough [Recovered/Resolved with Sequelae]
  - Chest discomfort [Unknown]
  - Tongue discomfort [Recovered/Resolved with Sequelae]
  - Oesophageal pain [Recovered/Resolved with Sequelae]
  - Fatigue [Unknown]
  - Oral pain [Recovered/Resolved with Sequelae]
  - Choking sensation [Unknown]

NARRATIVE: CASE EVENT DATE: 20210422
